FAERS Safety Report 6236626-2 (Version None)
Quarter: 2009Q2

REPORT INFORMATION
  Report Type: 
  Country: None (occurrence: None)
  Receive Date: 20090619
  Receipt Date: 20080804
  Transmission Date: 20091009
  Serious: No
  Sender: FDA-Public Use
  Company Number: US-ASTRAZENECA-2008UW15863

PATIENT
  Age: 68 Year
  Sex: Female

DRUGS (4)
  1. ATACAND HCT [Suspect]
     Indication: HYPERTENSION
     Dosage: 32/12.5
     Route: 048
  2. SERTALINE HCL [Concomitant]
  3. DILTIZEM ER [Concomitant]
  4. CALCIUM [Concomitant]

REACTIONS (2)
  - GINGIVAL BLISTER [None]
  - GINGIVAL DISORDER [None]
